FAERS Safety Report 11659105 (Version 1)
Quarter: 2015Q4

REPORT INFORMATION
  Report Type: Spontaneous
  Country: US (occurrence: US)
  Receive Date: 20151026
  Receipt Date: 20151026
  Transmission Date: 20160304
  Serious: No
  Sender: FDA-Public Use
  Company Number: US-MEDA-2010080016

PATIENT
  Sex: Male

DRUGS (2)
  1. ASTEPRO [Suspect]
     Active Substance: AZELASTINE HYDROCHLORIDE
     Indication: NASAL CONGESTION
     Dates: start: 201007, end: 20100809
  2. OXYGEN. [Concomitant]
     Active Substance: OXYGEN

REACTIONS (1)
  - Nasal discomfort [Recovered/Resolved]

NARRATIVE: CASE EVENT DATE: 201007
